FAERS Safety Report 21904845 (Version 1)
Quarter: 2023Q1

REPORT INFORMATION
  Report Type: Spontaneous
  Country: CN (occurrence: CN)
  Receive Date: 20230124
  Receipt Date: 20230124
  Transmission Date: 20230417
  Serious: Yes (Hospitalization)
  Sender: FDA-Public Use
  Company Number: CN-PFIZER INC-PV202300013283

PATIENT
  Age: 80 Year
  Sex: Male
  Weight: 51 kg

DRUGS (1)
  1. NIRMATRELVIR\RITONAVIR [Suspect]
     Active Substance: NIRMATRELVIR\RITONAVIR
     Indication: Pneumonia viral
     Dosage: 3.000 DF, 2X/DAY
     Route: 048
     Dates: start: 20230105, end: 20230110

REACTIONS (4)
  - Unresponsive to stimuli [Recovering/Resolving]
  - Cognitive disorder [Recovering/Resolving]
  - Abnormal behaviour [Recovering/Resolving]
  - Off label use [Unknown]

NARRATIVE: CASE EVENT DATE: 20230110
